FAERS Safety Report 5635913-6 (Version None)
Quarter: 2008Q1

REPORT INFORMATION
  Report Type: 
  Country: None (occurrence: None)
  Receive Date: 20080219
  Receipt Date: 20071122
  Transmission Date: 20080703
  Serious: Yes (Hospitalization)
  Sender: FDA-Public Use
  Company Number: 2008AL000682

PATIENT
  Sex: Female

DRUGS (8)
  1. DOXAZOSIN MESYLATE [Suspect]
     Indication: HYPERTENSION
     Dosage: 2 MG; QD; PO
     Route: 048
     Dates: end: 20071024
  2. BENDROFLUMETHIAZIDE [Concomitant]
  3. OMEPRAZOLE [Concomitant]
  4. DILTIAZEM [Concomitant]
  5. DOSULEPIN [Concomitant]
  6. ATORVASTATIN CALCIUM [Concomitant]
  7. CLOPIDOGREL [Concomitant]
  8. ISOSORBIDE MONONITRATE [Concomitant]

REACTIONS (2)
  - DIZZINESS POSTURAL [None]
  - TINNITUS [None]
